FAERS Safety Report 13041300 (Version 1)
Quarter: 2016Q4

REPORT INFORMATION
  Report Type: Spontaneous
  Country: US (occurrence: US)
  Receive Date: 20161219
  Receipt Date: 20161219
  Transmission Date: 20170207
  Serious: No
  Sender: FDA-Public Use
  Company Number: US-ROCHE-1068434

PATIENT
  Age: 96 Year
  Sex: Male
  Weight: 69.46 kg

DRUGS (2)
  1. ZELBORAF [Suspect]
     Active Substance: VEMURAFENIB
     Indication: MALIGNANT MELANOMA
     Dosage: 3 PILLS
     Route: 048
     Dates: start: 201208
  2. ZELBORAF [Suspect]
     Active Substance: VEMURAFENIB
     Dosage: 3 PILLS
     Route: 048
     Dates: start: 201208

REACTIONS (8)
  - Peripheral swelling [Not Recovered/Not Resolved]
  - Neoplasm recurrence [Unknown]
  - Pruritus [Unknown]
  - Fatigue [Unknown]
  - Erythema [Unknown]
  - Dizziness [Unknown]
  - Lymphoedema [Unknown]
  - Decreased appetite [Unknown]

NARRATIVE: CASE EVENT DATE: 20120831
